FAERS Safety Report 16391748 (Version 1)
Quarter: 2019Q2

REPORT INFORMATION
  Report Type: Spontaneous
  Country: US (occurrence: US)
  Receive Date: 20190605
  Receipt Date: 20190605
  Transmission Date: 20190711
  Serious: No
  Sender: FDA-Public Use
  Company Number: US-ROCHE-2201177

PATIENT
  Sex: Male

DRUGS (4)
  1. SOLU-MEDROL [Concomitant]
     Active Substance: METHYLPREDNISOLONE SODIUM SUCCINATE
     Dosage: ONGOING: UNKNOWN
     Route: 065
  2. OCREVUS [Suspect]
     Active Substance: OCRELIZUMAB
     Indication: PRODUCT USED FOR UNKNOWN INDICATION
     Dosage: FIRST HALF ;ONGOING: YES
     Route: 065
  3. SOLU-MEDROL [Concomitant]
     Active Substance: METHYLPREDNISOLONE SODIUM SUCCINATE
     Dosage: ONGOING: YES
     Route: 065
  4. OCREVUS [Suspect]
     Active Substance: OCRELIZUMAB
     Dosage: SECOND HALF ;ONGOING: UNKNOWN
     Route: 065

REACTIONS (6)
  - Malaise [Not Recovered/Not Resolved]
  - Dizziness [Unknown]
  - Insomnia [Recovered/Resolved with Sequelae]
  - Blood pressure increased [Unknown]
  - Visual impairment [Unknown]
  - Palpitations [Recovered/Resolved with Sequelae]
